FAERS Safety Report 11292178 (Version 2)
Quarter: 2015Q4

REPORT INFORMATION
  Report Type: Spontaneous
  Country: JP (occurrence: JP)
  Receive Date: 20150722
  Receipt Date: 20151028
  Transmission Date: 20160304
  Serious: Yes (Other)
  Sender: FDA-Public Use
  Company Number: JP-BRISTOL-MYERS SQUIBB COMPANY-BMS-2015-047272

PATIENT
  Age: 74 Year
  Sex: Male

DRUGS (6)
  1. CAPECITABINE. [Concomitant]
     Active Substance: CAPECITABINE
     Indication: COLON CANCER
     Route: 065
  2. OXALIPLATIN. [Concomitant]
     Active Substance: OXALIPLATIN
     Indication: COLON CANCER
     Route: 041
  3. ERBITUX [Suspect]
     Active Substance: CETUXIMAB
     Indication: COLON CANCER
     Route: 041
  4. TS-1 [Suspect]
     Active Substance: GIMERACIL\OTERACIL\TEGAFUR
     Indication: COLON CANCER
     Route: 048
  5. BEVACIZUMAB [Concomitant]
     Active Substance: BEVACIZUMAB
     Indication: COLON CANCER
     Route: 065
  6. PANITUMUMAB [Concomitant]
     Active Substance: PANITUMUMAB
     Indication: COLON CANCER
     Route: 065

REACTIONS (1)
  - Paraneoplastic dermatomyositis [Recovering/Resolving]
